FAERS Safety Report 15569626 (Version 2)
Quarter: 2018Q4

REPORT INFORMATION
  Report Type: Spontaneous
  Country: BR (occurrence: BR)
  Receive Date: 20181031
  Receipt Date: 20181224
  Transmission Date: 20190205
  Serious: Yes (Hospitalization, Other)
  Sender: FDA-Public Use
  Company Number: BR-AMGEN-BRASP2018152546

PATIENT
  Age: 37 Year
  Sex: Female

DRUGS (1)
  1. ENBREL [Suspect]
     Active Substance: ETANERCEPT
     Indication: PRODUCT USED FOR UNKNOWN INDICATION
     Dosage: UNK
     Route: 065
     Dates: start: 20181010

REACTIONS (7)
  - Fibromyalgia [Unknown]
  - Anxiety [Unknown]
  - Rheumatoid arthritis [Unknown]
  - Sciatica [Unknown]
  - Pain [Unknown]
  - Arthralgia [Unknown]
  - Spinal disorder [Unknown]
